FAERS Safety Report 23783175 (Version 1)
Quarter: 2024Q2

REPORT INFORMATION
  Report Type: Spontaneous
  Country: US (occurrence: US)
  Receive Date: 20240425
  Receipt Date: 20240425
  Transmission Date: 20240716
  Serious: Yes (Death, Hospitalization)
  Sender: FDA-Public Use
  Company Number: US-ELI_LILLY_AND_COMPANY-US202404015681

PATIENT
  Age: 70 Year
  Sex: Male

DRUGS (2)
  1. TADALAFIL [Suspect]
     Active Substance: TADALAFIL
     Indication: Blood pressure increased
     Dosage: UNK, UNKNOWN
     Route: 048
  2. TADALAFIL [Suspect]
     Active Substance: TADALAFIL
     Indication: Cardiac index decreased

REACTIONS (5)
  - Right ventricular failure [Fatal]
  - Pulmonary veno-occlusive disease [Unknown]
  - Hypoxia [Unknown]
  - Pulmonary oedema [Unknown]
  - Tumour embolism [Unknown]
